FAERS Safety Report 23218625 (Version 1)
Quarter: 2023Q4

REPORT INFORMATION
  Report Type: Spontaneous
  Country: US (occurrence: US)
  Receive Date: 20231122
  Receipt Date: 20231122
  Transmission Date: 20240110
  Serious: Yes (Other)
  Sender: FDA-Public Use
  Company Number: US-ENDO-CASE-0045799

PATIENT
  Sex: Male

DRUGS (1)
  1. ACETAMINOPHEN\OXYCODONE HYDROCHLORIDE [Suspect]
     Active Substance: ACETAMINOPHEN\OXYCODONE HYDROCHLORIDE

REACTIONS (12)
  - Dry mouth [Unknown]
  - Constipation [Unknown]
  - Nausea [Unknown]
  - Tremor [Unknown]
  - Abdominal pain upper [Unknown]
  - Depression [Unknown]
  - Restlessness [Unknown]
  - Confusional state [Unknown]
  - Insomnia [Unknown]
  - Circulatory collapse [Unknown]
  - Dependence [Unknown]
  - Vomiting [Unknown]
